FAERS Safety Report 10079014 (Version 1)
Quarter: 2014Q2

REPORT INFORMATION
  Report Type: Spontaneous
  Country: JP (occurrence: JP)
  Receive Date: 20140415
  Receipt Date: 20140415
  Transmission Date: 20141212
  Serious: Yes (Other)
  Sender: FDA-Public Use
  Company Number: JP-ROCHE-1380738

PATIENT
  Age: 62 Year
  Sex: Male

DRUGS (5)
  1. HERCEPTIN [Suspect]
     Indication: GASTRIC CANCER
     Dosage: DOSAGE IS UNCERTAIN.
     Route: 041
  2. CISPLATIN [Concomitant]
     Indication: GASTRIC CANCER
     Dosage: DOSAGE IS UNCERTAIN.
     Route: 041
  3. TEGAFUR [Concomitant]
  4. GIMERACIL [Concomitant]
  5. OTERACIL POTASSIUM [Concomitant]

REACTIONS (2)
  - Peritonitis [Unknown]
  - Vomiting [Unknown]
